FAERS Safety Report 7246408-0 (Version None)
Quarter: 2011Q1

REPORT INFORMATION
  Report Type: 
  Country: None (occurrence: None)
  Receive Date: 20110126
  Receipt Date: 20100709
  Transmission Date: 20110831
  Serious: No
  Sender: FDA-Public Use
  Company Number: US-BAUSCH-2010BL003763

PATIENT
  Age: 7 Year
  Sex: Male

DRUGS (4)
  1. ZYLET [Suspect]
     Indication: OFF LABEL USE
     Route: 047
     Dates: start: 20100429, end: 20100429
  2. ZYLET [Suspect]
     Route: 047
     Dates: start: 20100501, end: 20100501
  3. ZYLET [Suspect]
     Route: 047
     Dates: start: 20100501, end: 20100501
  4. ZYLET [Suspect]
     Indication: EPISCLERITIS
     Route: 047
     Dates: start: 20100429, end: 20100429

REACTIONS (1)
  - HYPERSENSITIVITY [None]
